FAERS Safety Report 6994240-5 (Version None)
Quarter: 2010Q3

REPORT INFORMATION
  Report Type: 
  Country: None (occurrence: None)
  Receive Date: 20100917
  Receipt Date: 20100527
  Transmission Date: 20110219
  Serious: Yes (Other)
  Sender: FDA-Public Use
  Company Number: US-ASTRAZENECA-2008UW13255

PATIENT
  Age: 24068 Day
  Sex: Female
  Weight: 88 kg

DRUGS (3)
  1. SEROQUEL [Suspect]
     Indication: DEPRESSION
     Dosage: 25 MG - 200 MG
     Route: 048
     Dates: start: 20030901, end: 20070401
  2. SERTRALINE HYDROCHLORIDE [Concomitant]
  3. AERCEPT [Concomitant]

REACTIONS (3)
  - BLOOD CHOLESTEROL INCREASED [None]
  - CATARACT [None]
  - TYPE 2 DIABETES MELLITUS [None]
